FAERS Safety Report 6049986-2 (Version None)
Quarter: 2009Q1

REPORT INFORMATION
  Report Type: 
  Country: None (occurrence: None)
  Receive Date: 20090121
  Receipt Date: 20090106
  Transmission Date: 20090719
  Serious: Yes (Death)
  Sender: FDA-Public Use
  Company Number: 2009EK000001

PATIENT

DRUGS (1)
  1. CARDENE [Suspect]
     Indication: HYPERTENSIVE EMERGENCY
     Dosage: IV
     Route: 042

REACTIONS (5)
  - CEREBROVASCULAR DISORDER [None]
  - HYPERTENSION [None]
  - NERVOUS SYSTEM DISORDER [None]
  - PROCEDURAL HYPERTENSION [None]
  - TACHYARRHYTHMIA [None]
